FAERS Safety Report 23496148 (Version 1)
Quarter: 2024Q1

REPORT INFORMATION
  Report Type: Spontaneous
  Country: US (occurrence: None)
  Receive Date: 20240207
  Receipt Date: 20240207
  Transmission Date: 20240410
  Serious: No
  Sender: FDA-Public Use
  Company Number: US-ROCHE-3291092

PATIENT
  Age: 66 Year
  Sex: Male

DRUGS (4)
  1. XOLAIR [Suspect]
     Active Substance: OMALIZUMAB
     Indication: Product used for unknown indication
     Dosage: DOSE: 5 MG/ML
     Route: 065
     Dates: start: 20230111
  2. XOLAIR [Suspect]
     Active Substance: OMALIZUMAB
     Dosage: DOSE: 75 MG/ML
     Route: 065
     Dates: start: 20230214
  3. ATORVASTATIN [Concomitant]
     Active Substance: ATORVASTATIN
  4. TRADJENTA [Concomitant]
     Active Substance: LINAGLIPTIN

REACTIONS (3)
  - Headache [Unknown]
  - Ear pain [Unknown]
  - Pain in extremity [Unknown]

NARRATIVE: CASE EVENT DATE: 20230112
